FAERS Safety Report 12267398 (Version 1)
Quarter: 2016Q2

REPORT INFORMATION
  Report Type: Spontaneous
  Country: GB (occurrence: GB)
  Receive Date: 20160414
  Receipt Date: 20160414
  Transmission Date: 20160815
  Serious: Yes (Hospitalization)
  Sender: FDA-Public Use
  Company Number: GB-ACTAVIS-2016-07735

PATIENT
  Age: 41 Year
  Sex: Female
  Weight: 99 kg

DRUGS (4)
  1. MONTELUKAST [Suspect]
     Active Substance: MONTELUKAST SODIUM
     Indication: URTICARIA
     Dosage: 10 MG, DAILY
     Route: 048
     Dates: start: 20160226, end: 20160321
  2. FEXOFENADINE [Suspect]
     Active Substance: FEXOFENADINE\FEXOFENADINE HYDROCHLORIDE
     Indication: URTICARIA
     Dosage: 180 MG, DAILY
     Route: 048
     Dates: start: 20160224, end: 20160321
  3. RANITIDINE. [Concomitant]
     Active Substance: RANITIDINE
     Indication: GASTROOESOPHAGEAL REFLUX DISEASE
     Dosage: UNK
     Route: 065
     Dates: start: 20151110, end: 20160321
  4. CETIRIZINE [Concomitant]
     Active Substance: CETIRIZINE HYDROCHLORIDE
     Indication: PRODUCT USED FOR UNKNOWN INDICATION
     Dosage: 10 MG, QID
     Route: 065
     Dates: end: 20160224

REACTIONS (1)
  - Stevens-Johnson syndrome [Recovering/Resolving]

NARRATIVE: CASE EVENT DATE: 20160314
